FAERS Safety Report 5779408-8 (Version None)
Quarter: 2008Q2

REPORT INFORMATION
  Report Type: 
  Country: None (occurrence: None)
  Receive Date: 20080619
  Receipt Date: 20071001
  Transmission Date: 20081010
  Serious: No
  Sender: FDA-Public Use
  Company Number: US-ASTRAZENECA-2007UW22898

PATIENT
  Age: 84 Year
  Sex: Female
  Weight: 59 kg

DRUGS (5)
  1. ATACAND [Suspect]
     Indication: HYPERTENSION
     Route: 048
  2. ATACAND [Suspect]
     Route: 048
  3. SYNTHROID [Concomitant]
  4. FUROSEMIDE [Concomitant]
  5. ACID REDUCER (OTC) [Concomitant]

REACTIONS (3)
  - BURNING SENSATION [None]
  - GLOSSODYNIA [None]
  - ORAL DISCOMFORT [None]
